FAERS Safety Report 10256271 (Version 1)
Quarter: 2014Q2

REPORT INFORMATION
  Report Type: Spontaneous
  Country: US (occurrence: US)
  Receive Date: 20140624
  Receipt Date: 20140624
  Transmission Date: 20141212
  Serious: No
  Sender: FDA-Public Use
  Company Number: US-ZOGENIX, INC.-2012ZX000123

PATIENT
  Age: 52 Year
  Sex: Female
  Weight: 68.1 kg

DRUGS (6)
  1. SUMAVEL DOSEPRO [Suspect]
     Indication: MIGRAINE
  2. SUMAVEL DOSEPRO [Suspect]
     Dates: start: 20120331, end: 20120331
  3. WELLBUTRIN XL [Concomitant]
     Indication: DEPRESSION
  4. LUNESTA [Concomitant]
     Indication: SLEEP DISORDER
  5. ATIVAN [Concomitant]
     Indication: ANXIETY
  6. SOMA [Concomitant]
     Indication: PAIN

REACTIONS (3)
  - Injection site pain [Recovered/Resolved]
  - Injection site haemorrhage [Recovered/Resolved]
  - Drug ineffective [Unknown]
